FAERS Safety Report 10521679 (Version 2)
Quarter: 2014Q4

REPORT INFORMATION
  Report Type: Report from Study
  Country: GB (occurrence: GB)
  Receive Date: 20141016
  Receipt Date: 20141016
  Transmission Date: 20150528
  Serious: Yes (Life-Threatening, Hospitalization, Other)
  Sender: FDA-Public Use
  Company Number: GB-GLAXOSMITHKLINE-B0895938A

PATIENT

DRUGS (7)
  1. SERETIDE [Concomitant]
     Active Substance: FLUTICASONE FUROATE\SALMETEROL XINAFOATE
     Indication: CHRONIC OBSTRUCTIVE PULMONARY DISEASE
     Dosage: 500 004 BID
     Route: 055
     Dates: start: 20070806, end: 20121122
  2. CYCLIZINE [Concomitant]
     Active Substance: CYCLIZINE
     Indication: CHOLECYSTITIS ACUTE
     Dosage: 50 003 TID
     Route: 042
     Dates: start: 20130529, end: 20130531
  3. FLUTICASONE FUROATE + VILANTEROL TRIFENATATE [Suspect]
     Active Substance: FLUTICASONE FUROATE\VILANTEROL TRIFENATATE
     Indication: CHRONIC OBSTRUCTIVE PULMONARY DISEASE
     Dosage: 100/25 UG, QD
     Route: 055
     Dates: start: 20121123, end: 20130530
  4. FLUTICASONE PROPIONATE+SALMETEROL XINAFOATE [Suspect]
     Active Substance: FLUTICASONE PROPIONATE\SALMETEROL XINAFOATE
     Indication: CHRONIC OBSTRUCTIVE PULMONARY DISEASE
     Dosage: 500/50 UG, BID
     Route: 055
     Dates: start: 20130701, end: 20130705
  5. CYCLIZINE [Concomitant]
     Active Substance: CYCLIZINE
     Indication: CHOLECYSTITIS ACUTE
  6. TIOTROPIUM [Suspect]
     Active Substance: TIOTROPIUM
     Indication: CHRONIC OBSTRUCTIVE PULMONARY DISEASE
     Dosage: 5 UG, QD
     Route: 055
     Dates: start: 20121123, end: 20130705
  7. SPIRIVA [Concomitant]
     Active Substance: TIOTROPIUM BROMIDE MONOHYDRATE
     Indication: CHRONIC OBSTRUCTIVE PULMONARY DISEASE
     Dosage: 5 004 OD
     Route: 055
     Dates: start: 20100827, end: 20121122

REACTIONS (2)
  - Cholecystitis acute [Recovered/Resolved]
  - Liver function test abnormal [Recovered/Resolved]

NARRATIVE: CASE EVENT DATE: 20130529
